FAERS Safety Report 10642703 (Version 1)
Quarter: 2014Q4

REPORT INFORMATION
  Report Type: Spontaneous
  Country: US (occurrence: None)
  Receive Date: 20141121
  Receipt Date: 20141121
  Transmission Date: 20150529
  Serious: No
  Sender: FDA-Public Use
  Company Number: 163-10004-14072042

PATIENT
  Age: 64 Year
  Sex: Male
  Weight: 96.16 kg

DRUGS (8)
  1. JANUVIA (SITAGLIPTION PHOSPHATE) [Concomitant]
  2. SIMVASTATIN (SIMVASTATIN) [Concomitant]
     Active Substance: SIMVASTATIN
  3. METHOTREXATE (METHOTREXATE) [Concomitant]
     Active Substance: METHOTREXATE
  4. SIMPONI (GOLIMUMAB) [Concomitant]
  5. GABAPENTIN (GABAPENTIN) [Concomitant]
     Active Substance: GABAPENTIN
  6. OTEZLA [Suspect]
     Active Substance: APREMILAST
     Indication: PSORIATIC ARTHROPATHY
     Route: 048
     Dates: start: 201405
  7. DILTIAZEM (DILTIAZEM) [Concomitant]
  8. FOLIC ACID (FOLIC ACID) [Concomitant]
     Active Substance: FOLIC ACID

REACTIONS (1)
  - Headache [None]

NARRATIVE: CASE EVENT DATE: 201406
